FAERS Safety Report 4374793-6 (Version None)
Quarter: 2004Q2

REPORT INFORMATION
  Report Type: 
  Country: None (occurrence: None)
  Receive Date: 20040604
  Receipt Date: 20040527
  Transmission Date: 20050107
  Serious: Yes (Life-Threatening, Hospitalization)
  Sender: FDA-Public Use
  Company Number: 2004201994JP

PATIENT
  Age: 43 Year
  Sex: Female
  Weight: 66 kg

DRUGS (6)
  1. AZULFIDINE EN-TABS [Suspect]
     Indication: RHEUMATOID ARTHRITIS
     Dosage: 1000MG/DAY, ORAL
     Route: 048
     Dates: start: 20040122, end: 20040220
  2. MAXIPIME [Suspect]
     Indication: PROPHYLAXIS
     Dosage: 1000MG/DAY, IV
     Route: 042
     Dates: start: 20040228, end: 20040301
  3. CYTOTEC [Concomitant]
  4. LOXOPROFEN SODIUM (LOXOPROFEN SODIUM) [Concomitant]
  5. OXATOMIDE [Concomitant]
  6. ACETAMINOPHEN [Concomitant]

REACTIONS (4)
  - HEPATITIS ACUTE [None]
  - HYPERSENSITIVITY [None]
  - RASH [None]
  - SHOCK [None]
